FAERS Safety Report 20819747 (Version 1)
Quarter: 2022Q2

REPORT INFORMATION
  Report Type: Spontaneous
  Country: US (occurrence: US)
  Receive Date: 20220512
  Receipt Date: 20220512
  Transmission Date: 20220721
  Serious: Yes (Hospitalization)
  Sender: FDA-Public Use
  Company Number: US-JNJFOC-20220521176

PATIENT
  Age: 67 Year
  Sex: Female
  Weight: 65.4 kg

DRUGS (21)
  1. FAMOTIDINE [Suspect]
     Active Substance: FAMOTIDINE
     Indication: Product used for unknown indication
     Dosage: 20 MG, 2X/DAY
     Route: 048
  2. FLUCONAZOLE [Suspect]
     Active Substance: FLUCONAZOLE
     Indication: Product used for unknown indication
     Dosage: 200 MG, 1X/DAY
     Route: 048
  3. LEVOFLOXACIN [Suspect]
     Active Substance: LEVOFLOXACIN
     Indication: Product used for unknown indication
     Dosage: 750 MG, AS NEEDED
     Route: 048
  4. INOTUZUMAB OZOGAMICIN [Suspect]
     Active Substance: INOTUZUMAB OZOGAMICIN
     Indication: Product used for unknown indication
     Dosage: 0.6 MG/M2, DAY 8, 15
     Route: 065
     Dates: start: 20220426
  5. DOXORUBICIN HYDROCHLORIDE [Suspect]
     Active Substance: DOXORUBICIN HYDROCHLORIDE
     Indication: Product used for unknown indication
     Dosage: 10 MG/M2/DAY CIV DAYS 1-4 Q28 DAYS
     Route: 065
     Dates: start: 20220420, end: 20220424
  6. VINCRISTINE SULFATE [Suspect]
     Active Substance: VINCRISTINE SULFATE
     Indication: Product used for unknown indication
     Dosage: 0.4 MG/M2/DAY CIV DAYS 1-4 Q28 DAYS
     Route: 065
     Dates: start: 20220420, end: 20220424
  7. ETOPOSIDE [Suspect]
     Active Substance: ETOPOSIDE
     Indication: Product used for unknown indication
     Dosage: 50 MG/M2/DAY, CIV DAYS 1-4 Q28 DAYS
     Route: 065
     Dates: start: 20220420, end: 20220424
  8. CYCLOPHOSPHAMIDE [Suspect]
     Active Substance: CYCLOPHOSPHAMIDE
     Indication: Product used for unknown indication
     Dosage: 750 MG/M2 IV DAY 5 Q28 DAYS
     Route: 042
     Dates: start: 20220425, end: 20220425
  9. ACYCLOVIR [Suspect]
     Active Substance: ACYCLOVIR
     Indication: Product used for unknown indication
     Dosage: 800 MG, 2X/DAY
     Route: 048
  10. CALCIUM CARBONATE [Suspect]
     Active Substance: CALCIUM CARBONATE
     Indication: Product used for unknown indication
     Dosage: 1250(500 CA) MG, 1X/DAY
     Route: 048
  11. CARBOXYMETHYLCELLULOSE [Suspect]
     Active Substance: CARBOXYMETHYLCELLULOSE
     Indication: Product used for unknown indication
     Dosage: CARBOXYMETHYLCELLULOSE PF 1% OPHTHALMIC GEL, PLACE 1 DROP TO EACH EYE QD
     Route: 047
  12. LETROZOLE [Suspect]
     Active Substance: LETROZOLE
     Indication: Product used for unknown indication
     Dosage: 2.5 MG, 1X/DAY
     Route: 048
  13. ONDANSETRON HYDROCHLORIDE [Suspect]
     Active Substance: ONDANSETRON HYDROCHLORIDE
     Indication: Product used for unknown indication
     Dosage: 1 TABLET PO Q8HR
     Route: 048
  14. POTASSIUM CHLORIDE [Suspect]
     Active Substance: POTASSIUM CHLORIDE
     Indication: Product used for unknown indication
     Dosage: 20 MEQ ER TABLET, 2 TABLETS PO QD
     Route: 048
  15. PROCHLORPERAZINE [Suspect]
     Active Substance: PROCHLORPERAZINE
     Indication: Product used for unknown indication
     Dosage: 1 TABLET PO Q6HR PRN
     Route: 048
  16. ROSUVASTATIN [Suspect]
     Active Substance: ROSUVASTATIN
     Indication: Product used for unknown indication
     Dosage: 5 MG, 1X/DAY
     Route: 048
  17. SCOPOLAMINE [Suspect]
     Active Substance: SCOPOLAMINE
     Indication: Product used for unknown indication
     Dosage: 1 MG/3DAYS PATCH, PLACE 1 PATCH ON THE SKIN EVERY 72 HOURS
     Route: 065
  18. SENNOSIDES A AND B [Suspect]
     Active Substance: SENNOSIDES A AND B
     Indication: Product used for unknown indication
     Dosage: 1-2 TABLETS PO PRN
     Route: 048
  19. SULFAMETHOXAZOLE\TRIMETHOPRIM [Suspect]
     Active Substance: SULFAMETHOXAZOLE\TRIMETHOPRIM
     Indication: Product used for unknown indication
     Dosage: [SULFAMETHOXAZOLE 800 MG]/[TRIMETHOPRIM  160MG], 1 TABLET PO BID ON MONDAY AND TUESDAY
     Route: 048
  20. TORSEMIDE [Suspect]
     Active Substance: TORSEMIDE
     Indication: Product used for unknown indication
     Dosage: 20 MG TABLET, 2 TABLETS PO BLD FOR 5 DAYS
     Route: 048
  21. URSODIOL [Suspect]
     Active Substance: URSODIOL
     Indication: Product used for unknown indication
     Dosage: 250 MG TABLET, 1.5 TABLETS PO BID
     Route: 048

REACTIONS (6)
  - Nausea [Not Recovered/Not Resolved]
  - Fatigue [Unknown]
  - Vomiting [Unknown]
  - Diarrhoea [Unknown]
  - Syncope [Unknown]
  - Tachycardia [Unknown]

NARRATIVE: CASE EVENT DATE: 20220427
